FAERS Safety Report 12281511 (Version 1)
Quarter: 2016Q2

REPORT INFORMATION
  Report Type: Spontaneous
  Country: IT (occurrence: IT)
  Receive Date: 20160419
  Receipt Date: 20160419
  Transmission Date: 20160815
  Serious: Yes (Other)
  Sender: FDA-Public Use
  Company Number: IT-ABBVIE-16K-083-1605473-00

PATIENT
  Age: 42 Year
  Sex: Female

DRUGS (1)
  1. HUMIRA [Suspect]
     Active Substance: ADALIMUMAB
     Indication: PRODUCT USED FOR UNKNOWN INDICATION
     Route: 058
     Dates: start: 20130625, end: 20160301

REACTIONS (2)
  - Intraductal proliferative breast lesion [Unknown]
  - Dystrophic calcification [Unknown]

NARRATIVE: CASE EVENT DATE: 20160301
